FAERS Safety Report 14202866 (Version 1)
Quarter: 2017Q4

REPORT INFORMATION
  Report Type: Spontaneous
  Country: US (occurrence: None)
  Receive Date: 20171116
  Receipt Date: 20171116
  Transmission Date: 20180321
  Serious: No
  Sender: FDA-Public Use
  Company Number: None

PATIENT
  Age: 28 Year
  Sex: Female

DRUGS (1)
  1. MAVYRET [Suspect]
     Active Substance: GLECAPREVIR\PIBRENTASVIR
     Indication: CHRONIC HEPATITIS C
     Dosage: DOSE AMOUNT - 100MG/40MG X3 TABLETS
     Route: 048
     Dates: start: 20170913

REACTIONS (1)
  - Fatigue [None]

NARRATIVE: CASE EVENT DATE: 20170930
